FAERS Safety Report 6849936-2 (Version None)
Quarter: 2010Q3

REPORT INFORMATION
  Report Type: 
  Country: None (occurrence: None)
  Receive Date: 20100716
  Receipt Date: 20071004
  Transmission Date: 20110219
  Serious: No
  Sender: FDA-Public Use
  Company Number: US-PFIZER INC-2007085208

PATIENT
  Sex: Female

DRUGS (4)
  1. CHANTIX [Suspect]
     Indication: SMOKING CESSATION THERAPY
     Dates: start: 20070701
  2. HYDROCHLOROTHIAZIDE [Concomitant]
  3. TOPROL-XL [Concomitant]
  4. ACETYLSALICYLIC ACID [Concomitant]

REACTIONS (5)
  - ABNORMAL DREAMS [None]
  - BLOOD CHOLESTEROL INCREASED [None]
  - NAUSEA [None]
  - SLEEP DISORDER [None]
  - WEIGHT INCREASED [None]
